FAERS Safety Report 6674001-7 (Version None)
Quarter: 2010Q2

REPORT INFORMATION
  Report Type: 
  Country: None (occurrence: None)
  Receive Date: 20100409
  Receipt Date: 20100114
  Transmission Date: 20101027
  Serious: No
  Sender: FDA-Public Use
  Company Number: A0839439A

PATIENT
  Age: 37 Year
  Sex: Male

DRUGS (2)
  1. CLOBETASOL PROPIONATE [Suspect]
     Indication: ILL-DEFINED DISORDER
     Route: 061
     Dates: start: 20100113
  2. PRILOSEC [Concomitant]
     Route: 048

REACTIONS (2)
  - DRUG SCREEN POSITIVE [None]
  - EXPIRED DRUG ADMINISTERED [None]
